FAERS Safety Report 8075248-8 (Version None)
Quarter: 2012Q1

REPORT INFORMATION
  Report Type: 
  Country: None (occurrence: None)
  Receive Date: 20120127
  Receipt Date: 20120123
  Transmission Date: 20120608
  Serious: Yes (Death, Other)
  Sender: FDA-Public Use
  Company Number: US-CELGENEUS-163-21880-12011781

PATIENT
  Sex: Male

DRUGS (3)
  1. DIGOXIN [Concomitant]
     Dosage: 0.1
     Route: 065
  2. REVLIMID [Suspect]
     Indication: NON-HODGKIN'S LYMPHOMA
     Dosage: 10 MILLIGRAM
     Route: 048
     Dates: start: 20110804, end: 20120110
  3. CELEXA [Concomitant]
     Indication: DEPRESSION
     Route: 065

REACTIONS (2)
  - ACUTE MYELOID LEUKAEMIA [None]
  - DEATH [None]
